FAERS Safety Report 9360629 (Version 2)
Quarter: 2013Q3

REPORT INFORMATION
  Report Type: Spontaneous
  Country: FR (occurrence: FR)
  Receive Date: 20130621
  Receipt Date: 20130809
  Transmission Date: 20140515
  Serious: Yes (Death, Hospitalization)
  Sender: FDA-Public Use
  Company Number: FR-ASTRAZENECA-2013SE47381

PATIENT
  Age: 23680 Day
  Sex: Male
  Weight: 71 kg

DRUGS (9)
  1. ASPIRINE [Suspect]
     Dates: start: 20130616
  2. KARDEGIC [Concomitant]
     Indication: ACUTE CORONARY SYNDROME
     Route: 048
     Dates: start: 20130606, end: 20130615
  3. SECTRAL [Concomitant]
     Indication: ACUTE CORONARY SYNDROME
     Route: 048
     Dates: start: 20130606, end: 20130615
  4. SECTRAL [Concomitant]
     Indication: HYPERTENSION
     Route: 048
     Dates: start: 20130606, end: 20130615
  5. EFIENT [Concomitant]
     Dates: start: 20130616
  6. TRIATEC [Suspect]
     Indication: ACUTE CORONARY SYNDROME
     Route: 048
     Dates: start: 20130606, end: 20130615
  7. TRIATEC [Suspect]
     Indication: HYPERTENSION
     Route: 048
     Dates: start: 20130606, end: 20130615
  8. CRESTOR [Suspect]
     Indication: CARDIOVASCULAR EVENT PROPHYLAXIS
     Route: 048
     Dates: start: 20130606, end: 20130615
  9. BRILIQUE [Suspect]
     Indication: ACUTE CORONARY SYNDROME
     Route: 048
     Dates: start: 20130606, end: 20130615

REACTIONS (3)
  - Angioedema [Recovering/Resolving]
  - Thrombosis in device [Fatal]
  - Drug dose omission [Unknown]
